FAERS Safety Report 7121652-1 (Version None)
Quarter: 2010Q4

REPORT INFORMATION
  Report Type: 
  Country: None (occurrence: None)
  Receive Date: 20101124
  Receipt Date: 20100524
  Transmission Date: 20110411
  Serious: No
  Sender: FDA-Public Use
  Company Number: US-PFIZER INC-2010065369

PATIENT
  Sex: Female

DRUGS (1)
  1. SPIRONOLACTONE [Suspect]

REACTIONS (1)
  - THIRST [None]
